FAERS Safety Report 23043517 (Version 1)
Quarter: 2023Q4

REPORT INFORMATION
  Report Type: Other
  Country: GB (occurrence: GB)
  Receive Date: 20231009
  Receipt Date: 20231009
  Transmission Date: 20240110
  Serious: Yes (Life-Threatening, Other)
  Sender: FDA-Public Use
  Company Number: GB-MHRA-MED-202309251638558000-ZJCKN

PATIENT
  Age: 37 Year
  Sex: Female
  Weight: 67 kg

DRUGS (1)
  1. SERTRALINE [Suspect]
     Active Substance: SERTRALINE HYDROCHLORIDE
     Indication: Anxiety
     Dosage: 25 MG
     Route: 065

REACTIONS (12)
  - Nausea [Recovered/Resolved]
  - Nervousness [Recovered/Resolved with Sequelae]
  - Insomnia [Recovered/Resolved]
  - Hyperhidrosis [Recovered/Resolved]
  - Anxiety [Recovered/Resolved with Sequelae]
  - Panic attack [Recovered/Resolved with Sequelae]
  - Decreased appetite [Recovered/Resolved]
  - Nightmare [Not Recovered/Not Resolved]
  - Tachyphrenia [Recovered/Resolved with Sequelae]
  - Self-injurious ideation [Recovered/Resolved]
  - Migraine [Recovered/Resolved]
  - Injury [Not Recovered/Not Resolved]
